FAERS Safety Report 21040019 (Version 2)
Quarter: 2022Q3

REPORT INFORMATION
  Report Type: Spontaneous
  Country: RU (occurrence: RU)
  Receive Date: 20220704
  Receipt Date: 20220715
  Transmission Date: 20221027
  Serious: Yes (Hospitalization, Other)
  Sender: FDA-Public Use
  Company Number: RU-BoehringerIngelheim-2022-BI-178759

PATIENT
  Sex: Female
  Weight: 80 kg

DRUGS (2)
  1. SYNJARDY [Suspect]
     Active Substance: EMPAGLIFLOZIN\METFORMIN HYDROCHLORIDE
     Indication: Type 2 diabetes mellitus
     Dosage: 12,5/1000 MG - DAILY DOSE
     Route: 048
     Dates: start: 2020, end: 20220610
  2. SYNJARDY [Suspect]
     Active Substance: EMPAGLIFLOZIN\METFORMIN HYDROCHLORIDE
     Dates: end: 20220705

REACTIONS (5)
  - Pancreatitis acute [Recovered/Resolved]
  - Haemolysis [Recovered/Resolved]
  - Ketonuria [Recovered/Resolved]
  - Blood cholesterol increased [Not Recovered/Not Resolved]
  - Type IIa hyperlipidaemia [Not Recovered/Not Resolved]

NARRATIVE: CASE EVENT DATE: 20220610
